FAERS Safety Report 5339702-1 (Version None)
Quarter: 2007Q2

REPORT INFORMATION
  Report Type: 
  Country: None (occurrence: None)
  Receive Date: 20070404
  Receipt Date: 20061212
  Transmission Date: 20071010
  Serious: Yes (Other)
  Sender: FDA-Public Use
  Company Number: 2006113508

PATIENT
  Age: 46 Year
  Sex: Female

DRUGS (4)
  1. GEODON [Suspect]
     Indication: CONDITION AGGRAVATED
     Dosage: 40 MG (40 MG)
     Dates: start: 20060918, end: 20060921
  2. GEODON [Suspect]
     Indication: DEPRESSION
     Dosage: 40 MG (40 MG)
     Dates: start: 20060918, end: 20060921
  3. EFFEXOR XR [Suspect]
  4. CYTOMEL [Concomitant]

REACTIONS (1)
  - HEART RATE INCREASED [None]
